FAERS Safety Report 15838816 (Version 1)
Quarter: 2019Q1

REPORT INFORMATION
  Report Type: Spontaneous
  Country: FI (occurrence: FI)
  Receive Date: 20190117
  Receipt Date: 20190117
  Transmission Date: 20190417
  Serious: Yes (Life-Threatening)
  Sender: FDA-Public Use
  Company Number: FI-ELI_LILLY_AND_COMPANY-FI201901006456

PATIENT
  Age: 63 Year
  Sex: Male

DRUGS (7)
  1. ZANIDIP [Concomitant]
     Active Substance: LERCANIDIPINE HYDROCHLORIDE
     Dosage: UNK
  2. TOSTRAN [Concomitant]
     Active Substance: TESTOSTERONE
     Dosage: UNK
  3. CALCI CHEW D3 [Concomitant]
     Active Substance: CALCIUM CARBONATE\CHOLECALCIFEROL
     Dosage: UNK
  4. ENALAPRIL ORION [Concomitant]
     Dosage: UNK
  5. ZYPADHERA [Suspect]
     Active Substance: OLANZAPINE PAMOATE
     Indication: SCHIZOPHRENIA
     Dosage: 405 MG, MONTHLY (1/M)
     Route: 030
     Dates: start: 20181211
  6. NORITREN [Concomitant]
     Active Substance: NORTRIPTYLINE HYDROCHLORIDE
     Dosage: UNK
  7. VOLTAREN [Concomitant]
     Active Substance: DICLOFENAC SODIUM
     Dosage: UNK

REACTIONS (9)
  - Pneumonia aspiration [Not Recovered/Not Resolved]
  - Vomiting [Not Recovered/Not Resolved]
  - Oesophagitis [Not Recovered/Not Resolved]
  - Depressed level of consciousness [Not Recovered/Not Resolved]
  - Respiratory failure [Not Recovered/Not Resolved]
  - Dizziness [Not Recovered/Not Resolved]
  - Oesophageal haemorrhage [Not Recovered/Not Resolved]
  - Malaise [Not Recovered/Not Resolved]
  - Aspiration [Not Recovered/Not Resolved]

NARRATIVE: CASE EVENT DATE: 20181211
